FAERS Safety Report 9644120 (Version 4)
Quarter: 2013Q4

REPORT INFORMATION
  Report Type: Spontaneous
  Country: US (occurrence: US)
  Receive Date: 20131024
  Receipt Date: 20131125
  Transmission Date: 20140711
  Serious: Yes (Death, Hospitalization, Other)
  Sender: FDA-Public Use
  Company Number: US-BAXTER-2013BAX041664

PATIENT
  Age: 75 Year
  Sex: Female

DRUGS (2)
  1. DIANEAL LOW CALCIUM [Suspect]
     Indication: RENAL FAILURE CHRONIC
     Route: 033
     Dates: start: 201208, end: 20131110
  2. DIANEAL LOW CALCIUM [Suspect]
     Indication: PERITONEAL DIALYSIS

REACTIONS (6)
  - Neoplasm malignant [Fatal]
  - Cystitis [Fatal]
  - Upper limb fracture [Recovering/Resolving]
  - Metastatic carcinoma of the bladder [Unknown]
  - Metastases to bone [Unknown]
  - Plasma cell myeloma [Not Recovered/Not Resolved]
